FAERS Safety Report 25652658 (Version 3)
Quarter: 2025Q3

REPORT INFORMATION
  Report Type: Report from Study
  Country: US (occurrence: US)
  Receive Date: 20250807
  Receipt Date: 20250903
  Transmission Date: 20251020
  Serious: Yes (Hospitalization)
  Sender: DECIPHERA PHARMACEUTICALS
  Company Number: US-DECIPHERA PHARMACEUTICALS LLC-2025US000924

PATIENT
  Age: 85 Year
  Sex: Female
  Weight: 49.891 kg

DRUGS (2)
  1. QINLOCK [Suspect]
     Active Substance: RIPRETINIB
     Indication: Abdominal neoplasm
     Dosage: 150 MILLIGRAM, QD
     Route: 048
     Dates: start: 20240612, end: 202507
  2. QINLOCK [Suspect]
     Active Substance: RIPRETINIB
     Indication: Connective tissue neoplasm
     Dosage: 50 MILLIGRAM, QD (1 TABLET ONCE DAILY)
     Route: 048
     Dates: start: 202508

REACTIONS (2)
  - Mass excision [Unknown]
  - Product use in unapproved indication [Unknown]

NARRATIVE: CASE EVENT DATE: 20240612
